FAERS Safety Report 9269707 (Version 1)
Quarter: 2013Q2

REPORT INFORMATION
  Report Type: Spontaneous
  Country: US (occurrence: US)
  Receive Date: 20130503
  Receipt Date: 20130503
  Transmission Date: 20140414
  Serious: No
  Sender: FDA-Public Use
  Company Number: US-B.I. PHARMACEUTICALS,INC./RIDGEFIELD-2013-BI-11409BP

PATIENT
  Age: 63 Year
  Sex: Female
  Weight: 86 kg

DRUGS (3)
  1. PRADAXA [Suspect]
     Indication: ATRIAL FIBRILLATION
     Dosage: 300 MG
     Route: 048
     Dates: start: 201103
  2. TIKOSYN [Concomitant]
     Indication: ATRIAL FIBRILLATION
     Dosage: 1000 MG
     Route: 048
     Dates: start: 2007
  3. TOPROL [Concomitant]
     Indication: HEART RATE
     Dosage: 300 MG
     Route: 048
     Dates: start: 2007

REACTIONS (1)
  - Atrial fibrillation [Not Recovered/Not Resolved]
